FAERS Safety Report 17808203 (Version 2)
Quarter: 2020Q2

REPORT INFORMATION
  Report Type: Report from Study
  Country: IT (occurrence: IT)
  Receive Date: 20200520
  Receipt Date: 20200616
  Transmission Date: 20200714
  Serious: Yes (Death, Other)
  Sender: FDA-Public Use
  Company Number: IT-ROCHE-2604117

PATIENT
  Age: 69 Year
  Sex: Female

DRUGS (1)
  1. TOCILIZUMAB. [Suspect]
     Active Substance: TOCILIZUMAB
     Indication: COVID-19 PNEUMONIA
     Dosage: TOCILIZUMAB 8 MG/KG (UP TO A MAXIMUM OF 800MG PER DOSE). SECOND ADMINISTRATION (SAME DOSE) OPTIONAL
     Route: 042
     Dates: start: 20200326

REACTIONS (2)
  - Multiple organ dysfunction syndrome [Fatal]
  - Pancreatitis [Not Recovered/Not Resolved]

NARRATIVE: CASE EVENT DATE: 20200420
